FAERS Safety Report 6946176-3 (Version None)
Quarter: 2010Q3

REPORT INFORMATION
  Report Type: 
  Country: None (occurrence: None)
  Receive Date: 20100827
  Receipt Date: 20100816
  Transmission Date: 20110219
  Serious: Yes (Other)
  Sender: FDA-Public Use
  Company Number: FR-GENENTECH-283509

PATIENT

DRUGS (3)
  1. RITUXIMAB [Suspect]
     Indication: NON-HODGKIN'S LYMPHOMA
     Dosage: 375 MG/M2, 4/WEEK
     Route: 065
  2. PROLEUKIN [Suspect]
     Indication: B-CELL LYMPHOMA
     Dosage: 8 MIU, UNK
     Route: 058
  3. IPH 1101 [Suspect]
     Indication: B-CELL LYMPHOMA
     Dosage: 750 MG/M2, Q3W
     Route: 042

REACTIONS (13)
  - ABDOMINAL PAIN UPPER [None]
  - ALANINE AMINOTRANSFERASE INCREASED [None]
  - ASTHENIA [None]
  - BACK PAIN [None]
  - BRONCHOSPASM [None]
  - DIARRHOEA [None]
  - GLOMERULAR FILTRATION RATE DECREASED [None]
  - HYPERSENSITIVITY [None]
  - HYPERTENSION [None]
  - HYPOTENSION [None]
  - INFLUENZA LIKE ILLNESS [None]
  - PYREXIA [None]
  - VOMITING [None]
